FAERS Safety Report 23725037 (Version 1)
Quarter: 2024Q2

REPORT INFORMATION
  Report Type: Spontaneous
  Country: FR (occurrence: FR)
  Receive Date: 20240410
  Receipt Date: 20240410
  Transmission Date: 20240716
  Serious: Yes (Hospitalization, Other)
  Sender: FDA-Public Use
  Company Number: FR-GTI-000224

PATIENT
  Age: 34 Year
  Sex: Male

DRUGS (9)
  1. ISONIAZID\PYRAZINAMIDE\RIFAMPIN [Suspect]
     Active Substance: ISONIAZID\PYRAZINAMIDE\RIFAMPIN
     Indication: Meningitis tuberculous
     Dosage: 6 PILLS OF RIFAMPICIN/ISONIAZID/PYRAZINAMIDE 300MG, 50MG AND 120MG
     Route: 065
  2. ISONIAZID\PYRAZINAMIDE\RIFAMPIN [Suspect]
     Active Substance: ISONIAZID\PYRAZINAMIDE\RIFAMPIN
     Indication: Pulmonary tuberculosis
     Dosage: 6 PILLS OF RIFAMPICIN/ISONIAZID/PYRAZINAMIDE 300MG, 50MG AND 120MG
     Route: 065
  3. ISONIAZID\PYRAZINAMIDE\RIFAMPIN [Suspect]
     Active Substance: ISONIAZID\PYRAZINAMIDE\RIFAMPIN
     Indication: Disseminated tuberculosis
     Dosage: 6 PILLS OF RIFAMPICIN/ISONIAZID/PYRAZINAMIDE 300MG, 50MG AND 120MG
     Route: 065
  4. PREDNISONE [Suspect]
     Active Substance: PREDNISONE
     Indication: Meningitis tuberculous
     Route: 065
  5. PREDNISONE [Suspect]
     Active Substance: PREDNISONE
     Indication: Pulmonary tuberculosis
     Route: 065
  6. PREDNISONE [Suspect]
     Active Substance: PREDNISONE
     Indication: Disseminated tuberculosis
     Route: 065
  7. ETHAMBUTOL [Suspect]
     Active Substance: ETHAMBUTOL HYDROCHLORIDE
     Indication: Meningitis tuberculous
     Dosage: 2 PILLS OF ETHAMBUTOL
     Route: 065
  8. ETHAMBUTOL [Suspect]
     Active Substance: ETHAMBUTOL HYDROCHLORIDE
     Indication: Pulmonary tuberculosis
     Dosage: 2 PILLS OF ETHAMBUTOL
     Route: 065
  9. ETHAMBUTOL [Suspect]
     Active Substance: ETHAMBUTOL HYDROCHLORIDE
     Indication: Disseminated tuberculosis
     Dosage: 2 PILLS OF ETHAMBUTOL
     Route: 065

REACTIONS (6)
  - Pulmonary tuberculosis [Recovered/Resolved]
  - Drug ineffective [Unknown]
  - Pyrexia [Recovered/Resolved]
  - Disease recurrence [Recovered/Resolved]
  - Disseminated tuberculosis [Recovered/Resolved]
  - Meningitis tuberculous [Recovered/Resolved]
